FAERS Safety Report 10416595 (Version 1)
Quarter: 2014Q3

REPORT INFORMATION
  Report Type: Spontaneous
  Country: US (occurrence: US)
  Receive Date: 20140828
  Receipt Date: 20140828
  Transmission Date: 20150326
  Serious: Yes (Hospitalization)
  Sender: FDA-Public Use
  Company Number: PHHY2014US105910

PATIENT
  Age: 54 Year
  Sex: Male

DRUGS (7)
  1. PHENYLEPHRINE [Concomitant]
     Active Substance: PHENYLEPHRINE\PHENYLEPHRINE HYDROCHLORIDE
  2. VALSARTAN. [Suspect]
     Active Substance: VALSARTAN
     Indication: HYPERTENSION
  3. ATENOLOL. [Suspect]
     Active Substance: ATENOLOL
     Indication: HYPERTENSION
  4. DOPAMINE [Suspect]
     Active Substance: DOPAMINE\DOPAMINE HYDROCHLORIDE
     Indication: HYPOTENSION
  5. CARBON MONOXIDE [Suspect]
     Active Substance: CARBON MONOXIDE
  6. AMLODIPINE [Suspect]
     Active Substance: AMLODIPINE BESYLATE
     Indication: HYPERTENSION
  7. INSULIN [Concomitant]
     Active Substance: INSULIN NOS

REACTIONS (5)
  - Renal failure [Unknown]
  - Pulmonary oedema [Recovering/Resolving]
  - Cardiogenic shock [Recovering/Resolving]
  - Overdose [Recovering/Resolving]
  - Lactic acidosis [Recovering/Resolving]
